FAERS Safety Report 8159097-8 (Version None)
Quarter: 2012Q1

REPORT INFORMATION
  Report Type: 
  Country: None (occurrence: None)
  Receive Date: 20120223
  Receipt Date: 20120110
  Transmission Date: 20120608
  Serious: Yes (Hospitalization)
  Sender: FDA-Public Use
  Company Number: CA-JNJFOC-20120110551

PATIENT
  Sex: Male
  Weight: 79.5 kg

DRUGS (4)
  1. CIPRO [Concomitant]
     Route: 065
  2. FLAGYL [Concomitant]
     Route: 065
  3. REMICADE [Suspect]
     Indication: COLITIS ULCERATIVE
     Route: 042
     Dates: start: 20110411
  4. PREDNISONE [Concomitant]
     Route: 065

REACTIONS (1)
  - LOWER LIMB FRACTURE [None]
